FAERS Safety Report 17020219 (Version 1)
Quarter: 2019Q4

REPORT INFORMATION
  Report Type: Spontaneous
  Country: US (occurrence: US)
  Receive Date: 20191005
  Receipt Date: 20191005
  Transmission Date: 20200122
  Serious: Yes (Hospitalization)
  Sender: FDA-Public Use
  Company Number: None

PATIENT
  Age: 70 Year
  Sex: Male
  Weight: 94.5 kg

DRUGS (2)
  1. CISPLATIN. [Suspect]
     Active Substance: CISPLATIN
     Dates: end: 20190826
  2. 5-FLUUROURACIL (5-FU) [Suspect]
     Active Substance: FLUOROURACIL
     Dates: end: 20190830

REACTIONS (10)
  - Oral pain [None]
  - Candida infection [None]
  - Weight decreased [None]
  - Mucosal inflammation [None]
  - Pulmonary embolism [None]
  - Pulmonary hypertension [None]
  - Dysphagia [None]
  - Deep vein thrombosis [None]
  - Tachycardia [None]
  - Dyspnoea [None]

NARRATIVE: CASE EVENT DATE: 20190923
